FAERS Safety Report 25758751 (Version 1)
Quarter: 2025Q3

REPORT INFORMATION
  Report Type: Spontaneous
  Country: US (occurrence: US)
  Receive Date: 20250904
  Receipt Date: 20250904
  Transmission Date: 20251020
  Serious: No
  Sender: GLAXOSMITHKLINE
  Company Number: US-GSK-US2025100701

PATIENT
  Age: 52 Year
  Sex: Female
  Weight: 70.295 kg

DRUGS (2)
  1. BENLYSTA [Suspect]
     Active Substance: BELIMUMAB
     Indication: Product used for unknown indication
  2. NAPROXEN SODIUM [Concomitant]
     Active Substance: NAPROXEN SODIUM
     Indication: Product used for unknown indication

REACTIONS (3)
  - Injection site pain [Unknown]
  - Wound [Not Recovered/Not Resolved]
  - Spider vein [Unknown]

NARRATIVE: CASE EVENT DATE: 20250801
